FAERS Safety Report 20971366 (Version 2)
Quarter: 2022Q3

REPORT INFORMATION
  Report Type: Spontaneous
  Country: US (occurrence: US)
  Receive Date: 20220616
  Receipt Date: 20220913
  Transmission Date: 20221027
  Serious: No
  Sender: FDA-Public Use
  Company Number: US-SA-SAC20220609001304

PATIENT
  Age: 67 Year
  Sex: Female

DRUGS (1)
  1. DUPIXENT [Suspect]
     Active Substance: DUPILUMAB
     Dosage: 300 MG OTHER
     Route: 058
     Dates: start: 202203

REACTIONS (5)
  - Eczema [Unknown]
  - Pruritus [Unknown]
  - Sinusitis [Unknown]
  - Vertigo [Unknown]
  - Stomatitis [Recovering/Resolving]

NARRATIVE: CASE EVENT DATE: 20220101
